FAERS Safety Report 7156874-7 (Version None)
Quarter: 2010Q4

REPORT INFORMATION
  Report Type: 
  Country: None (occurrence: None)
  Receive Date: 20101214
  Receipt Date: 20101208
  Transmission Date: 20110411
  Serious: Yes (Hospitalization, Other)
  Sender: FDA-Public Use
  Company Number: FR-PFIZER INC-2010166691

PATIENT
  Age: 81 Year
  Sex: Male

DRUGS (9)
  1. TAHOR [Suspect]
     Indication: DYSLIPIDAEMIA
     Dosage: 80 MG, 1X/DAY
     Route: 048
     Dates: end: 20101108
  2. FUCIDINE [Interacting]
     Indication: ANTIBIOTIC THERAPY
     Dosage: 250 MG X 6/DAY
     Route: 048
     Dates: start: 20101013, end: 20101104
  3. DALACIN [Concomitant]
     Dosage: UNKNOWN
  4. AVLOCARDYL [Concomitant]
     Dosage: UNKNOWN
  5. DOLIPRANE [Concomitant]
     Dosage: UNKNOWN
  6. DOMPERIDONE [Concomitant]
     Dosage: UNKNOWN
  7. NEXIUM [Concomitant]
     Dosage: UNKNOWN
  8. NISIS [Concomitant]
     Dosage: UNKNOWN
  9. TRIATEC [Concomitant]
     Dosage: UNKNOWN

REACTIONS (4)
  - DRUG INTERACTION [None]
  - INFECTION [None]
  - OEDEMA [None]
  - RHABDOMYOLYSIS [None]
